FAERS Safety Report 15863286 (Version 16)
Quarter: 2020Q2

REPORT INFORMATION
  Report Type: Report from Study
  Country: AR (occurrence: AR)
  Receive Date: 20190124
  Receipt Date: 20200518
  Transmission Date: 20200713
  Serious: Yes (Death, Hospitalization, Other)
  Sender: FDA-Public Use
  Company Number: AR-ACTELION-A-CH2019-185065

PATIENT
  Age: 34 Year
  Sex: Female
  Weight: 49 kg

DRUGS (8)
  1. VELETRI [Suspect]
     Active Substance: EPOPROSTENOL
     Dosage: 1 NG/KG, PER MIN
     Route: 042
     Dates: start: 20191004
  2. BILBERRY [Concomitant]
     Active Substance: BILBERRY
  3. VELETRI [Suspect]
     Active Substance: EPOPROSTENOL
     Dosage: 1 NG/KG, PER MIN
     Route: 042
     Dates: start: 20171004
  4. ACALIX [Concomitant]
  5. EPOPROSTENOL NORMON [Suspect]
     Active Substance: EPOPROSTENOL SODIUM
     Indication: PULMONARY ARTERIAL HYPERTENSION
     Dosage: 1 NG/KG, PER MIN
     Route: 042
     Dates: start: 20200304
  6. VELETRI [Suspect]
     Active Substance: EPOPROSTENOL
     Indication: PULMONARY ARTERIAL HYPERTENSION
     Dosage: 1 NG/KG, PER MIN
     Route: 042
     Dates: start: 20170410
  7. BOSENTAN. [Concomitant]
     Active Substance: BOSENTAN
  8. KETOROLAC [Concomitant]
     Active Substance: KETOROLAC TROMETHAMINE

REACTIONS (25)
  - Nephrolithiasis [Unknown]
  - Headache [Unknown]
  - Pyonephrosis [Unknown]
  - Catheter placement [Unknown]
  - Pain in extremity [Recovering/Resolving]
  - Lung disorder [Unknown]
  - Pneumonia [Unknown]
  - Abdominal pain upper [Unknown]
  - Death [Fatal]
  - Renal pain [Unknown]
  - Malaise [Unknown]
  - Discomfort [Recovering/Resolving]
  - Agitation [Unknown]
  - Diarrhoea [Recovered/Resolved]
  - Hypoglycaemia [Recovered/Resolved]
  - Dyspnoea [Unknown]
  - Apathy [Unknown]
  - Hydronephrosis [Unknown]
  - Urinary tract infection [Not Recovered/Not Resolved]
  - Cardiac disorder [Not Recovered/Not Resolved]
  - Renal surgery [Unknown]
  - Pyrexia [Recovering/Resolving]
  - Vomiting [Recovering/Resolving]
  - Sepsis [Not Recovered/Not Resolved]
  - Pain [Unknown]

NARRATIVE: CASE EVENT DATE: 20181021
